FAERS Safety Report 9796434 (Version 1)
Quarter: 2014Q1

REPORT INFORMATION
  Report Type: Spontaneous
  Country: DE (occurrence: DE)
  Receive Date: 20140103
  Receipt Date: 20140103
  Transmission Date: 20141002
  Serious: Yes (Death)
  Sender: FDA-Public Use
  Company Number: DE-CTI_01607_2013

PATIENT
  Age: 5 Day
  Sex: Male

DRUGS (4)
  1. CUROSURF [Suspect]
     Indication: ACUTE RESPIRATORY DISTRESS SYNDROME
     Route: 007
     Dates: start: 20131110, end: 20131110
  2. HYDROCORTISONE [Concomitant]
     Dosage: DF
     Dates: start: 20131110, end: 20131116
  3. NITRIC OXIDE [Concomitant]
     Dosage: 5-20 PPM
  4. DOBUTAMIN [Concomitant]
     Dosage: 5-20 MCG/KG
     Dates: start: 20131110, end: 20131116

REACTIONS (3)
  - Pulmonary haemorrhage [Unknown]
  - Respiratory failure [Fatal]
  - Pneumothorax [Unknown]
